FAERS Safety Report 10788222 (Version 1)
Quarter: 2015Q1

REPORT INFORMATION
  Report Type: Spontaneous
  Country: US (occurrence: US)
  Receive Date: 20150212
  Receipt Date: 20150212
  Transmission Date: 20150721
  Serious: No
  Sender: FDA-Public Use
  Company Number: US-ASTRAZENECA-2015SE11922

PATIENT
  Sex: Male

DRUGS (1)
  1. PULMICORT TURBUHALER [Suspect]
     Active Substance: BUDESONIDE
     Indication: COUGH
     Dosage: ONE INHALATION IN THE MORNING AND ONE AT NIGHT
     Route: 055

REACTIONS (4)
  - Product use issue [Unknown]
  - Drug dose omission [Unknown]
  - Dry mouth [Unknown]
  - Visual acuity reduced [Unknown]
